FAERS Safety Report 4407422-3 (Version None)
Quarter: 2004Q3

REPORT INFORMATION
  Report Type: 
  Country: None (occurrence: None)
  Receive Date: 20040721
  Receipt Date: 20040712
  Transmission Date: 20050211
  Serious: Yes (Disabling)
  Sender: FDA-Public Use
  Company Number: 2004SE04062

PATIENT
  Age: 37 Year
  Sex: Male

DRUGS (2)
  1. SEROQUEL [Suspect]
     Indication: PSYCHOTIC DISORDER
     Dosage: 75 MG DAILY PO
     Route: 048
     Dates: start: 20031201, end: 20040401
  2. SEROQUEL [Suspect]
     Indication: PSYCHOTIC DISORDER
     Dosage: 75 MG DAILY PO
     Route: 048
     Dates: start: 20040601

REACTIONS (8)
  - ASTHENIA [None]
  - CHEST PAIN [None]
  - DIZZINESS [None]
  - HEADACHE [None]
  - MYALGIA [None]
  - NIGHTMARE [None]
  - SLEEP DISORDER [None]
  - TREMOR [None]
